FAERS Safety Report 8935586 (Version 3)
Quarter: 2013Q1

REPORT INFORMATION
  Report Type: Spontaneous
  Country: GB (occurrence: GB)
  Receive Date: 20121130
  Receipt Date: 20130111
  Transmission Date: 20140127
  Serious: Yes (Other)
  Sender: FDA-Public Use
  Company Number: GB-BAYER-2012-124833

PATIENT
  Age: 45 Year
  Sex: Female
  Weight: 60 kg

DRUGS (1)
  1. CANESTEN PESSARY [Suspect]
     Dosage: UNK
     Dates: start: 20121122, end: 20121126

REACTIONS (4)
  - Vaginal haemorrhage [Recovered/Resolved]
  - Swelling [None]
  - Vaginal discharge [None]
  - Pain [None]
